FAERS Safety Report 20375640 (Version 1)
Quarter: 2022Q1

REPORT INFORMATION
  Report Type: Report from Study
  Country: US (occurrence: None)
  Receive Date: 20220125
  Receipt Date: 20220125
  Transmission Date: 20220423
  Serious: Yes (Hospitalization, Other)
  Sender: FDA-Public Use
  Company Number: US-ROCHE-2561771

PATIENT
  Age: 68 Year
  Sex: Female
  Weight: 76.5 kg

DRUGS (2)
  1. ATEZOLIZUMAB [Suspect]
     Active Substance: ATEZOLIZUMAB
     Indication: Colorectal cancer
     Dosage: 840MG IV 60 MINUTES ON DAY 1
     Route: 041
     Dates: start: 20200212, end: 20200212
  2. ATEZOLIZUMAB [Suspect]
     Active Substance: ATEZOLIZUMAB
     Dosage: 840MG IV 30 MINUTES ON DAY 1
     Route: 041
     Dates: start: 20200212

REACTIONS (3)
  - Tumour pain [Recovered/Resolved with Sequelae]
  - Rash maculo-papular [Unknown]
  - Stomatitis [Unknown]

NARRATIVE: CASE EVENT DATE: 20200218
